FAERS Safety Report 10019969 (Version 4)
Quarter: 2014Q2

REPORT INFORMATION
  Report Type: Spontaneous
  Country: JP (occurrence: JP)
  Receive Date: 20140318
  Receipt Date: 20140618
  Transmission Date: 20141212
  Serious: Yes (Hospitalization, Other)
  Sender: FDA-Public Use
  Company Number: PHHY2014JP031310

PATIENT
  Age: 27 Year
  Sex: Male
  Weight: 57 kg

DRUGS (8)
  1. ISONIAZID [Suspect]
     Indication: PULMONARY TUBERCULOSIS
     Dosage: 300 MG, DAILY
     Route: 048
     Dates: start: 20111113
  2. ISONIAZID [Suspect]
     Dates: start: 20120105, end: 20120618
  3. RIFAMPICIN [Suspect]
     Indication: PULMONARY TUBERCULOSIS
     Dosage: 450 MG, DAILY
     Route: 048
     Dates: start: 20111113, end: 20111201
  4. RIFAMPICIN [Suspect]
     Dosage: 300 MG, DAILY
     Route: 048
     Dates: start: 20111227, end: 20120618
  5. ETHAMBUTOL [Suspect]
     Indication: PULMONARY TUBERCULOSIS
     Dosage: 750 MG, DAILY
     Route: 048
     Dates: start: 20111113, end: 20120618
  6. ETHAMBUTOL [Suspect]
     Dates: start: 20111227
  7. PYRAZINAMIDE [Suspect]
     Indication: PULMONARY TUBERCULOSIS
     Dosage: 1 G, DAILY
     Route: 048
     Dates: start: 20111113, end: 20111201
  8. LEVOFLOXACIN [Suspect]
     Indication: PULMONARY TUBERCULOSIS
     Dosage: 400 MG, DAILY
     Route: 048
     Dates: end: 20120618

REACTIONS (13)
  - Drug reaction with eosinophilia and systemic symptoms [Recovered/Resolved]
  - Hepatic function abnormal [Recovering/Resolving]
  - Drug eruption [Recovering/Resolving]
  - Pyrexia [Recovered/Resolved]
  - Rash [Recovering/Resolving]
  - Altered state of consciousness [Recovering/Resolving]
  - Lymphadenopathy [Recovering/Resolving]
  - Lymph node pain [Recovering/Resolving]
  - Skin exfoliation [Recovering/Resolving]
  - Papule [Recovering/Resolving]
  - Erythema [Recovering/Resolving]
  - Human herpes virus 6 serology positive [Recovering/Resolving]
  - Visual impairment [Unknown]
